FAERS Safety Report 10257846 (Version 1)
Quarter: 2014Q2

REPORT INFORMATION
  Report Type: Spontaneous
  Country: US (occurrence: None)
  Receive Date: 20140623
  Receipt Date: 20140623
  Transmission Date: 20141212
  Serious: Yes (Other)
  Sender: FDA-Public Use
  Company Number: None

PATIENT
  Age: 58 Year
  Sex: Male

DRUGS (1)
  1. EXJADE 500MG NOVARTIS [Suspect]
     Indication: ACUTE LEUKAEMIA
     Route: 048

REACTIONS (2)
  - Drug effect decreased [None]
  - Therapy cessation [None]
